FAERS Safety Report 4526789-9 (Version None)
Quarter: 2004Q4

REPORT INFORMATION
  Report Type: 
  Country: None (occurrence: None)
  Receive Date: 20041213
  Receipt Date: 20041206
  Transmission Date: 20050328
  Serious: Yes (Death, Hospitalization)
  Sender: FDA-Public Use
  Company Number: 2004UW22708

PATIENT
  Age: 75 Year
  Sex: Female
  Weight: 60.782 kg

DRUGS (4)
  1. IRESSA [Suspect]
     Indication: NON-SMALL CELL LUNG CANCER
     Dosage: 250 MG DAILY PO
     Route: 048
     Dates: start: 20040727, end: 20041020
  2. CELEBREX [Suspect]
     Indication: NON-SMALL CELL LUNG CANCER
     Dosage: 400 MG BID PO
     Route: 048
     Dates: start: 20040727, end: 20041020
  3. NORVASC [Concomitant]
  4. PREVACID [Concomitant]

REACTIONS (10)
  - CYST [None]
  - DISEASE PROGRESSION [None]
  - FALL [None]
  - FRACTURE [None]
  - GUILLAIN-BARRE SYNDROME [None]
  - HYPOAESTHESIA [None]
  - INTERVERTEBRAL DISC DEGENERATION [None]
  - NERVE ROOT LESION [None]
  - SPINAL COMPRESSION FRACTURE [None]
  - SPONDYLOSIS [None]
